FAERS Safety Report 24112372 (Version 1)
Quarter: 2024Q3

REPORT INFORMATION
  Report Type: Report from Study
  Country: US (occurrence: None)
  Receive Date: 20240719
  Receipt Date: 20240719
  Transmission Date: 20241016
  Serious: Yes (Hospitalization)
  Sender: ASTRAZENECA
  Company Number: 2023A081042

PATIENT
  Sex: Male

DRUGS (1)
  1. TAGRISSO [Suspect]
     Active Substance: OSIMERTINIB
     Indication: Illness
     Route: 048
     Dates: start: 202302

REACTIONS (4)
  - Urinary tract infection [Unknown]
  - Anaemia [Unknown]
  - Skin ulcer [Unknown]
  - Staphylococcal infection [Unknown]
